FAERS Safety Report 11247247 (Version 4)
Quarter: 2015Q4

REPORT INFORMATION
  Report Type: Spontaneous
  Country: US (occurrence: US)
  Receive Date: 20150708
  Receipt Date: 20151130
  Transmission Date: 20160304
  Serious: Yes (Other)
  Sender: FDA-Public Use
  Company Number: US-PFIZER INC-2015222756

PATIENT
  Age: 74 Year
  Sex: Male
  Weight: 87 kg

DRUGS (2)
  1. SUTENT [Suspect]
     Active Substance: SUNITINIB MALATE
     Indication: METASTATIC RENAL CELL CARCINOMA
     Dosage: 50 MG, CYCLIC
     Route: 048
     Dates: start: 201409, end: 2015
  2. SUTENT [Suspect]
     Active Substance: SUNITINIB MALATE
     Dosage: 50 MG, CYCLIC (4 WEEKS ON, 2 WEEKS OFF)
     Route: 048
     Dates: start: 2015, end: 20150701

REACTIONS (8)
  - Renal impairment [Unknown]
  - Diarrhoea [Recovered/Resolved]
  - Accident [Unknown]
  - Femur fracture [Unknown]
  - Pain [Unknown]
  - Pelvic fracture [Unknown]
  - Blood urine present [Unknown]
  - Nausea [Unknown]

NARRATIVE: CASE EVENT DATE: 201503
